FAERS Safety Report 10430413 (Version 1)
Quarter: 2014Q3

REPORT INFORMATION
  Report Type: Spontaneous
  Country: GB (occurrence: None)
  Receive Date: 20140902
  Receipt Date: 20140902
  Transmission Date: 20150326
  Serious: Yes (Other)
  Sender: FDA-Public Use
  Company Number: FK201403444

PATIENT
  Age: 54 Year
  Sex: Female
  Weight: 73.4 kg

DRUGS (2)
  1. ENBREL [Suspect]
     Active Substance: ETANERCEPT
     Indication: RHEUMATOID ARTHRITIS
     Dosage: 1 IN 1 WEEK
     Route: 058
     Dates: start: 2007
  2. METHOTREXATE (MANUFACTURER UNKNOWN) (METHOTREXATE) (METHOTREXATE) [Suspect]
     Active Substance: METHOTREXATE
     Indication: RHEUMATOID ARTHRITIS
     Dosage: 1 IN 1 WEEK
     Route: 048

REACTIONS (3)
  - Scar pain [None]
  - Arthropathy [None]
  - Erythema [None]

NARRATIVE: CASE EVENT DATE: 201408
